FAERS Safety Report 5659036-5 (Version None)
Quarter: 2008Q1

REPORT INFORMATION
  Report Type: 
  Country: None (occurrence: None)
  Receive Date: 20080310
  Receipt Date: 20071108
  Transmission Date: 20080703
  Serious: No
  Sender: FDA-Public Use
  Company Number: US-BAYER-200713113BCC

PATIENT
  Age: 87 Year
  Sex: Female
  Weight: 52 kg

DRUGS (5)
  1. ALEVE [Suspect]
     Indication: CARPAL TUNNEL SYNDROME
     Dosage: TOTAL DAILY DOSE: 220 MG  UNIT DOSE: 220 MG
     Route: 048
     Dates: start: 20070901
  2. LIPITOR [Concomitant]
  3. OSCAL [Concomitant]
  4. PRESSURE [Concomitant]
  5. VISION [Concomitant]

REACTIONS (2)
  - RESTLESSNESS [None]
  - SLEEP DISORDER [None]
